FAERS Safety Report 10499865 (Version 2)
Quarter: 2014Q4

REPORT INFORMATION
  Report Type: Spontaneous
  Country: US (occurrence: US)
  Receive Date: 20141006
  Receipt Date: 20141006
  Transmission Date: 20150528
  Serious: No
  Sender: FDA-Public Use
  Company Number: US-AMGEN INC.-USASP2014038067

PATIENT
  Age: 94 Year
  Sex: Female

DRUGS (13)
  1. SPIRIVA [Concomitant]
     Active Substance: TIOTROPIUM BROMIDE MONOHYDRATE
  2. VITAMIN D2 [Concomitant]
     Active Substance: ERGOCALCIFEROL
  3. CALCIUM [Concomitant]
     Active Substance: CALCIUM
     Dosage: 1200 MG, QD
  4. PREDNISONE. [Concomitant]
     Active Substance: PREDNISONE
  5. PROLIA [Suspect]
     Active Substance: DENOSUMAB
     Indication: OSTEOPOROSIS POSTMENOPAUSAL
     Dosage: UNK
     Route: 065
  6. VITAMIN D3 [Concomitant]
     Active Substance: CHOLECALCIFEROL
     Dosage: 1600 MG, UNK
  7. POTASSIUM CHLORIDE. [Concomitant]
     Active Substance: POTASSIUM CHLORIDE
  8. COUMADINE [Concomitant]
     Active Substance: WARFARIN SODIUM
  9. LASIX [Concomitant]
     Active Substance: FUROSEMIDE
  10. MICARDIS [Concomitant]
     Active Substance: TELMISARTAN
  11. SYNTHROID [Concomitant]
     Active Substance: LEVOTHYROXINE SODIUM
  12. METOPROLOL [Concomitant]
     Active Substance: METOPROLOL
  13. XANAX [Concomitant]
     Active Substance: ALPRAZOLAM
     Dosage: 1 TABLET, BID
     Route: 048

REACTIONS (2)
  - Nail disorder [Unknown]
  - Malaise [Unknown]
